FAERS Safety Report 7269289-8 (Version None)
Quarter: 2011Q1

REPORT INFORMATION
  Report Type: 
  Country: None (occurrence: None)
  Receive Date: 20110124
  Receipt Date: 20101230
  Transmission Date: 20110831
  Serious: No
  Sender: FDA-Public Use
  Company Number: 2010-01063

PATIENT
  Age: 39 Year
  Sex: Female
  Weight: 58.0604 kg

DRUGS (2)
  1. ZICAM COLD REMEDY PLUS LIQUI-LOZ [Suspect]
     Dosage: 3 DOSES
     Dates: start: 20101223, end: 20101223
  2. NASAL SALINE SPRAY [Concomitant]

REACTIONS (4)
  - TONGUE DISCOLOURATION [None]
  - DYSGEUSIA [None]
  - TONGUE DISORDER [None]
  - TONGUE COATED [None]
